FAERS Safety Report 7041048-0 (Version None)
Quarter: 2010Q4

REPORT INFORMATION
  Report Type: 
  Country: None (occurrence: None)
  Receive Date: 20101013
  Receipt Date: 20100930
  Transmission Date: 20110411
  Serious: Yes (Hospitalization)
  Sender: FDA-Public Use
  Company Number: ES-ELI_LILLY_AND_COMPANY-ES201010000373

PATIENT
  Age: 59 Year
  Sex: Male

DRUGS (2)
  1. ZYPREXA [Suspect]
     Dosage: 10 MG, DAILY (1/D)
     Route: 048
  2. INVEGA [Concomitant]
     Dosage: 6 MG, 2/D
     Route: 048
     Dates: start: 20100301, end: 20100702

REACTIONS (4)
  - ABDOMINAL PAIN [None]
  - COGNITIVE DISORDER [None]
  - HYPOKALAEMIA [None]
  - OFF LABEL USE [None]
